FAERS Safety Report 4802742-2 (Version None)
Quarter: 2005Q4

REPORT INFORMATION
  Report Type: 
  Country: None (occurrence: None)
  Receive Date: 20051017
  Receipt Date: 20051017
  Transmission Date: 20060501
  Serious: Yes (Death, Other)
  Sender: FDA-Public Use
  Company Number: None

PATIENT
  Age: 31 Year
  Sex: Female
  Weight: 56.6996 kg

DRUGS (1)
  1. DEPO-PROVERA [Suspect]
     Indication: CONTRACEPTION
     Dosage: 150 MG   Q13 WEEKS  IM
     Route: 030
     Dates: start: 20030601, end: 20051010

REACTIONS (3)
  - COMPLETED SUICIDE [None]
  - DEPRESSION [None]
  - GUN SHOT WOUND [None]
